FAERS Safety Report 11555349 (Version 3)
Quarter: 2015Q4

REPORT INFORMATION
  Report Type: Spontaneous
  Country: US (occurrence: US)
  Receive Date: 20150925
  Receipt Date: 20151105
  Transmission Date: 20160304
  Serious: Yes (Other)
  Sender: FDA-Public Use
  Company Number: US-BAYER-2015-431227

PATIENT
  Age: 26 Year
  Sex: Female

DRUGS (1)
  1. MIRENA [Suspect]
     Active Substance: LEVONORGESTREL
     Indication: CONTRACEPTION
     Dosage: 20 MCG/24HR, CONT
     Route: 015
     Dates: start: 20090223, end: 20130719

REACTIONS (5)
  - Pregnancy with contraceptive device [None]
  - Abortion spontaneous [None]
  - Abdominal pain lower [None]
  - Genital haemorrhage [None]
  - Drug ineffective [None]

NARRATIVE: CASE EVENT DATE: 201205
